FAERS Safety Report 7492379-1 (Version None)
Quarter: 2011Q2

REPORT INFORMATION
  Report Type: 
  Country: None (occurrence: None)
  Receive Date: 20110519
  Receipt Date: 20110516
  Transmission Date: 20111010
  Serious: Yes (Hospitalization)
  Sender: FDA-Public Use
  Company Number: DE-PFIZER INC-2007020917

PATIENT
  Age: 74 Year
  Sex: Male
  Weight: 69 kg

DRUGS (11)
  1. CLONIDINE [Concomitant]
     Route: 048
  2. ALNA [Concomitant]
     Route: 048
  3. ZIPRASIDONE HCL [Suspect]
     Dosage: 160MG PER DAY
     Route: 048
     Dates: start: 20060520, end: 20060522
  4. VALPROIC ACID [Concomitant]
     Dosage: 150 - 900MG
     Route: 048
     Dates: start: 20060320
  5. CORVATON [Concomitant]
     Route: 048
  6. ALLOPURINOL [Concomitant]
     Route: 048
  7. ZIPRASIDONE HCL [Suspect]
     Dosage: 120MG PER DAY
     Route: 048
     Dates: start: 20060516, end: 20060519
  8. ZIPRASIDONE HCL [Suspect]
     Indication: RESTLESSNESS
     Dosage: 40MG PER DAY
     Route: 048
     Dates: start: 20060503, end: 20060507
  9. ASPIRIN [Concomitant]
     Route: 048
  10. CIBADREX [Concomitant]
     Route: 048
  11. ZIPRASIDONE HCL [Suspect]
     Indication: DEMENTIA
     Dosage: 80MG PER DAY
     Route: 048
     Dates: start: 20060508, end: 20060515

REACTIONS (1)
  - CAMPTOCORMIA [None]
